FAERS Safety Report 16759356 (Version 1)
Quarter: 2019Q3

REPORT INFORMATION
  Report Type: Spontaneous
  Country: US (occurrence: US)
  Receive Date: 20190830
  Receipt Date: 20190830
  Transmission Date: 20191005
  Serious: No
  Sender: FDA-Public Use
  Company Number: US-MYLANLABS-2019M1077764

PATIENT

DRUGS (1)
  1. WIXELA INHUB [Suspect]
     Active Substance: FLUTICASONE PROPIONATE\SALMETEROL XINAFOATE
     Indication: ASTHMA
     Dosage: 150/50 MCG
     Route: 055
     Dates: start: 20190729

REACTIONS (4)
  - Incorrect dose administered [Not Recovered/Not Resolved]
  - Therapeutic product effect decreased [Not Recovered/Not Resolved]
  - Device issue [Not Recovered/Not Resolved]
  - Dyspnoea [Not Recovered/Not Resolved]

NARRATIVE: CASE EVENT DATE: 2019
